FAERS Safety Report 6894352-0 (Version None)
Quarter: 2010Q3

REPORT INFORMATION
  Report Type: 
  Country: None (occurrence: None)
  Receive Date: 20100727
  Receipt Date: 20100719
  Transmission Date: 20110219
  Serious: Yes (Other)
  Sender: FDA-Public Use
  Company Number: SP00833

PATIENT
  Age: 59 Year
  Sex: Female
  Weight: 53.6 kg

DRUGS (9)
  1. VISICOL [Suspect]
     Indication: COLONOSCOPY
     Dosage: (28 TABLETS), ORAL
     Route: 048
     Dates: start: 20050407, end: 20050407
  2. LOTREL [Concomitant]
  3. CELEBREX [Concomitant]
  4. ATORVASTATIN [Concomitant]
  5. LEVOTHYROXINE SODIUM [Concomitant]
  6. DETROL LA [Concomitant]
  7. PREMPRO [Concomitant]
  8. ASPIRIN [Concomitant]
  9. ALEVE (CAPLET) [Concomitant]

REACTIONS (9)
  - BLOOD CREATININE INCREASED [None]
  - BLOOD UREA INCREASED [None]
  - DECREASED APPETITE [None]
  - FATIGUE [None]
  - HYPOPHAGIA [None]
  - MALAISE [None]
  - NAUSEA [None]
  - NEPHROCALCINOSIS [None]
  - WEIGHT DECREASED [None]
